FAERS Safety Report 20703644 (Version 1)
Quarter: 2022Q2

REPORT INFORMATION
  Report Type: Spontaneous
  Country: AU (occurrence: AU)
  Receive Date: 20220413
  Receipt Date: 20220413
  Transmission Date: 20220720
  Serious: Yes (Hospitalization, Other)
  Sender: FDA-Public Use
  Company Number: AU-BoehringerIngelheim-2022-BI-164914

PATIENT
  Age: 1 Year
  Sex: Female

DRUGS (1)
  1. CATAPRES [Suspect]
     Active Substance: CLONIDINE HYDROCHLORIDE
     Indication: Product used for unknown indication
     Dosage: TWO OR THREE [TABLETS] WITH [UNKNOWN STRENGTH]
     Route: 048
     Dates: start: 20210302, end: 20210302

REACTIONS (6)
  - Bradycardia [Unknown]
  - Accidental exposure to product by child [Unknown]
  - Coma scale abnormal [Unknown]
  - Hypotension [Unknown]
  - Somnolence [Unknown]
  - Unresponsive to stimuli [Unknown]

NARRATIVE: CASE EVENT DATE: 20210302
